FAERS Safety Report 6774455-1 (Version None)
Quarter: 2010Q2

REPORT INFORMATION
  Report Type: 
  Country: None (occurrence: None)
  Receive Date: 20100617
  Receipt Date: 20100604
  Transmission Date: 20101027
  Serious: Yes (Other)
  Sender: FDA-Public Use
  Company Number: PHFR2010GB00512

PATIENT
  Sex: Male

DRUGS (5)
  1. CLOZARIL [Suspect]
     Indication: SCHIZOPHRENIA
     Dosage: 550 MG/DAY
     Route: 048
     Dates: start: 20051122
  2. MORPHINE [Suspect]
     Dosage: 35 MG TWICE WEEKLY
     Route: 062
  3. HYOSCINE HBR HYT [Concomitant]
     Route: 048
  4. MIRTAZAPINE [Concomitant]
     Dosage: 45 MG NOCTE
     Route: 048
  5. VENLAFAXINE [Concomitant]
     Dosage: 225 MG MANE
     Route: 048

REACTIONS (4)
  - DIARRHOEA [None]
  - FOOD POISONING [None]
  - HIP DEFORMITY [None]
  - VOMITING [None]
